FAERS Safety Report 21759707 (Version 1)
Quarter: 2022Q4

REPORT INFORMATION
  Report Type: Spontaneous
  Country: US (occurrence: US)
  Receive Date: 20221221
  Receipt Date: 20221221
  Transmission Date: 20230113
  Serious: Yes (Death, Other)
  Sender: FDA-Public Use
  Company Number: US-AMGEN-USASP2022217131

PATIENT
  Age: 25 Year
  Sex: Male

DRUGS (6)
  1. CARFILZOMIB [Suspect]
     Active Substance: CARFILZOMIB
     Indication: Immune tolerance induction
     Dosage: UNK
     Route: 065
  2. CARFILZOMIB [Suspect]
     Active Substance: CARFILZOMIB
     Indication: Off label use
  3. ASPIRIN [Concomitant]
     Active Substance: ASPIRIN
     Indication: Antiplatelet therapy
     Dosage: 325 MILLIGRAM, BID
  4. WARFARIN [Concomitant]
     Active Substance: WARFARIN
     Indication: Coagulation time prolonged
     Dosage: UNK
  5. BORTEZOMIB [Concomitant]
     Active Substance: BORTEZOMIB
     Indication: Immune tolerance induction
     Dosage: UNK
  6. RITUXIMAB [Concomitant]
     Active Substance: RITUXIMAB
     Indication: Immune tolerance induction
     Dosage: UNK

REACTIONS (2)
  - Haemorrhage intracranial [Fatal]
  - Off label use [Unknown]
